FAERS Safety Report 8161564-8 (Version None)
Quarter: 2012Q1

REPORT INFORMATION
  Report Type: 
  Country: None (occurrence: None)
  Receive Date: 20120224
  Receipt Date: 20120216
  Transmission Date: 20120608
  Serious: Yes (Hospitalization, Other)
  Sender: FDA-Public Use
  Company Number: US-UCBSA-050191

PATIENT
  Age: 48 Year
  Sex: Female
  Weight: 54.88 kg

DRUGS (19)
  1. FIORICET [Concomitant]
     Indication: MIGRAINE
     Dosage: DOSE PER INTAKE: 50-325-40MG; NO OF INTAKES: 3TABLETS
     Route: 048
     Dates: start: 20110214
  2. PLAQUENIL [Concomitant]
     Indication: RHEUMATOID ARTHRITIS
     Route: 048
     Dates: start: 20070521
  3. PRIMIDONE [Concomitant]
     Indication: TREMOR
     Route: 048
     Dates: start: 20110818
  4. PROCHLORPERAZINE [Concomitant]
     Indication: NAUSEA
     Route: 048
     Dates: start: 20110920
  5. MIRALAX [Concomitant]
     Indication: CONSTIPATION
     Route: 048
     Dates: start: 20110920
  6. NADOLOL [Concomitant]
     Indication: TREMOR
     Route: 048
     Dates: start: 20111003
  7. PRILOSEC [Concomitant]
     Indication: GASTROOESOPHAGEAL REFLUX DISEASE
     Route: 048
     Dates: start: 20110818
  8. MEDROL [Concomitant]
     Indication: SINUSITIS
     Dosage: 24/4MG TITRATING DOSE
     Route: 048
     Dates: start: 20111110, end: 20111115
  9. ZOFRAN [Concomitant]
     Indication: NAUSEA
     Route: 048
     Dates: start: 20110413
  10. CIMZIA [Suspect]
     Indication: RHEUMATOID ARTHRITIS
     Route: 058
     Dates: start: 20110913, end: 20111206
  11. PROZAC [Concomitant]
     Indication: DEPRESSION
     Route: 048
     Dates: start: 20100908
  12. BACTRIM DS [Concomitant]
     Indication: SINUSITIS
     Dosage: DOSE PER INTAKE :800/160
     Route: 048
     Dates: start: 20111110, end: 20111123
  13. TRAZODONE HCL [Concomitant]
     Indication: DEPRESSION
     Route: 048
     Dates: start: 20070521
  14. NASONEX [Concomitant]
     Indication: HYPERSENSITIVITY
     Dosage: ROUTE: INTRANASAL
     Dates: start: 20071210
  15. TYLENOL W/ CODEINE [Concomitant]
     Indication: PAIN
     Dosage: 300/30MG
     Route: 048
     Dates: start: 20110818
  16. XANAX [Concomitant]
     Indication: ANXIETY
     Dosage: NO OF INTAKES PER DAY: 2
     Route: 048
     Dates: start: 20081031
  17. BENEFIBER [Concomitant]
     Indication: CONSTIPATION
     Route: 048
     Dates: start: 20110920
  18. GUAIFENESIN [Concomitant]
     Indication: RESPIRATORY TRACT CONGESTION
     Route: 048
     Dates: start: 20110908
  19. CYCLOBENZAPRINE [Concomitant]
     Indication: MUSCLE TIGHTNESS
     Dosage: 5-10MG
     Route: 048
     Dates: start: 20111123

REACTIONS (2)
  - PNEUMONIA [None]
  - HEPATIC ENZYME INCREASED [None]
